FAERS Safety Report 7564597-5 (Version None)
Quarter: 2011Q2

REPORT INFORMATION
  Report Type: 
  Country: None (occurrence: None)
  Receive Date: 20110622
  Receipt Date: 20100622
  Transmission Date: 20111010
  Serious: Yes (Other)
  Sender: FDA-Public Use
  Company Number: US-MYLANLABS-2010S1011159

PATIENT
  Age: 50 Year
  Sex: Female

DRUGS (10)
  1. CLOZAPINE [Suspect]
     Route: 048
     Dates: end: 20100611
  2. CLOZAPINE [Suspect]
     Route: 048
     Dates: end: 20100611
  3. WARFARIN SODIUM [Concomitant]
     Route: 048
  4. NAVANE [Concomitant]
     Route: 048
  5. PAROXETINE HCL [Concomitant]
     Route: 048
  6. NEXIUM [Concomitant]
     Route: 048
  7. ONDANSETRON [Concomitant]
     Route: 048
  8. POTASSIUM [Concomitant]
     Route: 048
  9. CHEMOTHERAPEUTICS [Suspect]
     Indication: NEOPLASM MALIGNANT
  10. ADVAIR DISKUS 100/50 [Concomitant]
     Route: 055

REACTIONS (1)
  - GRANULOCYTOPENIA [None]
